FAERS Safety Report 7243846-7 (Version None)
Quarter: 2011Q1

REPORT INFORMATION
  Report Type: 
  Country: None (occurrence: None)
  Receive Date: 20110125
  Receipt Date: 20110120
  Transmission Date: 20110831
  Serious: Yes (Hospitalization)
  Sender: FDA-Public Use
  Company Number: A0774057A

PATIENT
  Age: 71 Year
  Sex: Male
  Weight: 105.9 kg

DRUGS (7)
  1. AVAPRO [Concomitant]
  2. ZOCOR [Concomitant]
  3. GLUCOPHAGE [Concomitant]
  4. ALLEGRA [Concomitant]
  5. GLIPIZIDE [Concomitant]
  6. ASPIRIN [Concomitant]
  7. AVANDIA [Suspect]
     Indication: TYPE 2 DIABETES MELLITUS
     Dosage: 4MG PER DAY
     Route: 048
     Dates: start: 20000417, end: 20040505

REACTIONS (3)
  - ANXIETY [None]
  - DEPRESSION [None]
  - ACUTE MYOCARDIAL INFARCTION [None]
